FAERS Safety Report 9448201 (Version 1)
Quarter: 2013Q3

REPORT INFORMATION
  Report Type: Spontaneous
  Country: FR (occurrence: None)
  Receive Date: 20130806
  Receipt Date: 20130806
  Transmission Date: 20140515
  Serious: Yes (Hospitalization, Other)
  Sender: FDA-Public Use
  Company Number: 2013MPI00458

PATIENT
  Age: 34 Year
  Sex: Female

DRUGS (1)
  1. BRENTUXIMAB VEDOTIN (BRENTUXIMAB VEDOTIN) INJECTION [Suspect]
     Indication: HODGKIN^S DISEASE REFRACTORY
     Dosage: Q21D
     Route: 042
     Dates: start: 201201, end: 201211

REACTIONS (10)
  - Sinusitis [None]
  - Conjunctivitis viral [None]
  - Polyneuropathy [None]
  - Cholestasis [None]
  - Peripheral sensorimotor neuropathy [None]
  - Paraesthesia [None]
  - Areflexia [None]
  - Back pain [None]
  - Conjunctivitis viral [None]
  - Conjunctival hyperaemia [None]
